FAERS Safety Report 17072562 (Version 1)
Quarter: 2019Q4

REPORT INFORMATION
  Report Type: Spontaneous
  Country: US (occurrence: US)
  Receive Date: 20191028
  Receipt Date: 20191028
  Transmission Date: 20200122
  Serious: No
  Sender: FDA-Public Use
  Company Number: None

PATIENT

DRUGS (2)
  1. LEVAQUIN [Suspect]
     Active Substance: LEVOFLOXACIN
     Route: 042
  2. VENOFER [Suspect]
     Active Substance: IRON SUCROSE
     Route: 042

REACTIONS (2)
  - Wrong technique in product usage process [None]
  - Product administration error [None]
